FAERS Safety Report 15278380 (Version 1)
Quarter: 2018Q3

REPORT INFORMATION
  Report Type: Spontaneous
  Country: PT (occurrence: PT)
  Receive Date: 20180814
  Receipt Date: 20180814
  Transmission Date: 20181010
  Serious: Yes (Hospitalization, Other)
  Sender: FDA-Public Use
  Company Number: PHHY2018PT067558

PATIENT
  Age: 29 Year
  Sex: Male

DRUGS (3)
  1. MICARDIS [Suspect]
     Active Substance: TELMISARTAN
     Indication: NEPHROPATHY
     Route: 065
  2. MICARDIS [Suspect]
     Active Substance: TELMISARTAN
     Indication: HYPERTENSION
  3. ATORVASTATIN [Suspect]
     Active Substance: ATORVASTATIN
     Indication: NEPHROPATHY
     Route: 065

REACTIONS (2)
  - IgA nephropathy [Unknown]
  - Renal impairment [Unknown]
